FAERS Safety Report 9409580 (Version 18)
Quarter: 2014Q2

REPORT INFORMATION
  Report Type: Spontaneous
  Country: US (occurrence: US)
  Receive Date: 20130719
  Receipt Date: 20140516
  Transmission Date: 20141212
  Serious: Yes (Other)
  Sender: FDA-Public Use
  Company Number: PHEH2013US015338

PATIENT
  Sex: Female

DRUGS (21)
  1. ZOMETA [Suspect]
     Indication: OSTEOPOROSIS
     Dosage: 4 MG, QMO
     Route: 042
     Dates: end: 20120612
  2. AREDIA [Suspect]
     Route: 042
  3. SYNTHROID [Concomitant]
  4. ZANTAC [Concomitant]
  5. DETRILIN [Concomitant]
  6. NEXUM [Concomitant]
  7. DETROL LA [Concomitant]
  8. MIRAPEX [Concomitant]
  9. VYTORIN [Concomitant]
  10. FEXOFENADINE [Concomitant]
  11. CITRACAL [Concomitant]
  12. ASPIRIN [Concomitant]
  13. TYLENOL [Concomitant]
  14. METAMUCIL [Concomitant]
  15. TUSSIONEX [Concomitant]
  16. FLUTICASONE [Concomitant]
  17. AZITHROMYCIN [Concomitant]
  18. CEFUROXIME [Concomitant]
  19. LEVAQUIN [Concomitant]
  20. PREDNISONE [Concomitant]
     Indication: INFLAMMATION
  21. HYOSCYAMINE [Concomitant]

REACTIONS (168)
  - Injury [Unknown]
  - Ankle fracture [Unknown]
  - Wrist fracture [Unknown]
  - Rib fracture [Unknown]
  - Foot fracture [Unknown]
  - Hand fracture [Unknown]
  - Fall [Unknown]
  - Patella fracture [Unknown]
  - Sinusitis [Unknown]
  - Depression [Unknown]
  - Carotid bruit [Unknown]
  - Goitre [Unknown]
  - Cerebrovascular accident [Unknown]
  - Hemiparesis [Unknown]
  - Hiatus hernia [Unknown]
  - Lung infection [Unknown]
  - Diverticulitis [Unknown]
  - Mitral valve incompetence [Unknown]
  - Aortic stenosis [Unknown]
  - Tremor [Unknown]
  - Chronic obstructive pulmonary disease [Unknown]
  - Oral discomfort [Unknown]
  - Hypothyroidism [Unknown]
  - Cellulitis [Unknown]
  - Pleural effusion [Unknown]
  - Bronchitis [Unknown]
  - Hypertension [Unknown]
  - Subdural haematoma [Unknown]
  - Diverticulum [Unknown]
  - Lacunar infarction [Unknown]
  - Hypercholesterolaemia [Unknown]
  - Cerebral atrophy [Unknown]
  - Dysphagia [Unknown]
  - Vertebral foraminal stenosis [Unknown]
  - Lumbar spinal stenosis [Unknown]
  - Spinal compression fracture [Unknown]
  - Intervertebral disc disorder [Unknown]
  - Cyst [Unknown]
  - Bone cyst [Unknown]
  - Femur fracture [Unknown]
  - Fracture displacement [Unknown]
  - Osteopenia [Unknown]
  - Vertebral osteophyte [Unknown]
  - Pleural fibrosis [Unknown]
  - Pulmonary calcification [Unknown]
  - Spinal osteoarthritis [Unknown]
  - Hyperchloraemia [Unknown]
  - Hyperthyroidism [Unknown]
  - Onychomycosis [Unknown]
  - Anaemia [Unknown]
  - Arthritis [Unknown]
  - Large intestine polyp [Unknown]
  - Skin cancer [Unknown]
  - Fructose intolerance [Unknown]
  - Small intestinal bacterial overgrowth [Unknown]
  - Muscle spasticity [Unknown]
  - Urinary retention [Recovered/Resolved]
  - Mitral valve prolapse [Unknown]
  - Oesophageal dilatation [Unknown]
  - Deep vein thrombosis [Unknown]
  - Cognitive disorder [Unknown]
  - Haemorrhoids [Unknown]
  - Restless legs syndrome [Unknown]
  - Odynophagia [Unknown]
  - Osteoarthritis [Unknown]
  - Cerebral haemorrhage [Unknown]
  - Cerebral small vessel ischaemic disease [Unknown]
  - Urinary tract infection [Unknown]
  - Escherichia infection [Unknown]
  - Coronary artery disease [Unknown]
  - Left ventricular dysfunction [Unknown]
  - Rectal haemorrhage [Unknown]
  - Intervertebral disc space narrowing [Unknown]
  - Laceration [Unknown]
  - Oesophageal motility disorder [Unknown]
  - Cerebral arteriosclerosis [Unknown]
  - Peripheral vascular disorder [Unknown]
  - Seborrhoeic keratosis [Unknown]
  - Bowen^s disease [Unknown]
  - Hypertrophy [Unknown]
  - Pneumonia [Unknown]
  - Cardiomegaly [Unknown]
  - Cardiac failure congestive [Unknown]
  - Squamous cell carcinoma [Unknown]
  - Actinic elastosis [Unknown]
  - Epistaxis [Unknown]
  - Reflux laryngitis [Unknown]
  - Rotator cuff syndrome [Unknown]
  - Lymphoedema [Unknown]
  - Arteriosclerosis [Unknown]
  - Vascular calcification [Unknown]
  - Spinal column stenosis [Unknown]
  - Intervertebral disc degeneration [Unknown]
  - Dysarthria [Unknown]
  - Aphasia [Unknown]
  - Arthropathy [Unknown]
  - Ataxia [Unknown]
  - Sacroiliitis [Unknown]
  - Eye irritation [Unknown]
  - Eye pain [Unknown]
  - Borderline glaucoma [Unknown]
  - Lacrimation decreased [Unknown]
  - Posterior capsule opacification [Unknown]
  - Tendon rupture [Unknown]
  - Contusion [Unknown]
  - Ligament sprain [Unknown]
  - Wound [Unknown]
  - Limb asymmetry [Unknown]
  - Radiculopathy [Unknown]
  - Hyperlipidaemia [Unknown]
  - Joint swelling [Unknown]
  - Muscle strain [Unknown]
  - Cardiac murmur [Unknown]
  - Hip fracture [Unknown]
  - Sciatica [Unknown]
  - Hemiplegia [Unknown]
  - Peroneal nerve palsy [Unknown]
  - Bursitis [Unknown]
  - Toothache [Unknown]
  - Dental caries [Unknown]
  - Dental pulp disorder [Unknown]
  - Joint stiffness [Unknown]
  - Muscular weakness [Unknown]
  - Bronchiectasis [Unknown]
  - Irritable bowel syndrome [Unknown]
  - Respiratory tract infection [Unknown]
  - Pharyngeal erythema [Unknown]
  - Nasal turbinate hypertrophy [Unknown]
  - Lymphadenopathy [Unknown]
  - Tendon pain [Unknown]
  - Oedema [Unknown]
  - Osteosclerosis [Unknown]
  - Bone fragmentation [Unknown]
  - Gait disturbance [Unknown]
  - Arthralgia [Unknown]
  - Fatigue [Unknown]
  - Cough [Unknown]
  - Rhinorrhoea [Unknown]
  - Pyrexia [Unknown]
  - Dyspnoea [Unknown]
  - Sputum discoloured [Unknown]
  - Pain in extremity [Unknown]
  - Paranasal sinus discomfort [Unknown]
  - Headache [Unknown]
  - Wheezing [Unknown]
  - Ear pain [Unknown]
  - Constipation [Unknown]
  - Oedema peripheral [Unknown]
  - Ingrowing nail [Unknown]
  - Anxiety [Unknown]
  - Chest pain [Unknown]
  - Nasal congestion [Unknown]
  - Oropharyngeal pain [Unknown]
  - Alopecia [Unknown]
  - Rhinitis allergic [Unknown]
  - Chest discomfort [Unknown]
  - Dysphonia [Unknown]
  - Hypoaesthesia [Unknown]
  - Gastrooesophageal reflux disease [Unknown]
  - Urinary incontinence [Unknown]
  - Tachycardia [Unknown]
  - Insomnia [Unknown]
  - Muscle spasms [Unknown]
  - Neck pain [Unknown]
  - Papule [Unknown]
  - Scab [Unknown]
  - Malaise [Unknown]
  - Chills [Unknown]
